FAERS Safety Report 7203597-1 (Version None)
Quarter: 2010Q4

REPORT INFORMATION
  Report Type: 
  Country: None (occurrence: None)
  Receive Date: 20101230
  Receipt Date: 20101222
  Transmission Date: 20110411
  Serious: Yes (Other)
  Sender: FDA-Public Use
  Company Number: US-ENDO PHARMACEUTICALS INC.-OPER20100188

PATIENT
  Age: 40 Year
  Sex: Male

DRUGS (1)
  1. OPANA ER [Suspect]
     Dosage: UNK
     Route: 048
     Dates: start: 20100922, end: 20100101

REACTIONS (2)
  - CONVULSION [None]
  - SUBSTANCE ABUSE [None]
